FAERS Safety Report 5606470-5 (Version None)
Quarter: 2008Q1

REPORT INFORMATION
  Report Type: 
  Country: None (occurrence: None)
  Receive Date: 20080129
  Receipt Date: 20080116
  Transmission Date: 20080703
  Serious: Yes (Hospitalization)
  Sender: FDA-Public Use
  Company Number: JP-MERCK-0801USA05050

PATIENT
  Age: 58 Year
  Sex: Male

DRUGS (4)
  1. SINGULAIR [Suspect]
     Indication: ASTHMA
     Route: 048
     Dates: start: 20070514
  2. UNIPHYL [Concomitant]
     Indication: ASTHMA
     Route: 048
     Dates: start: 20070514
  3. FLUTIDE [Concomitant]
     Indication: ASTHMA
     Dates: start: 20070514
  4. SEREVENT [Concomitant]
     Indication: ASTHMA
     Dates: start: 20070514

REACTIONS (1)
  - HENOCH-SCHONLEIN PURPURA [None]
